FAERS Safety Report 12994065 (Version 1)
Quarter: 2016Q4

REPORT INFORMATION
  Report Type: Spontaneous
  Country: US (occurrence: US)
  Receive Date: 20161201
  Receipt Date: 20161201
  Transmission Date: 20170207
  Serious: Yes (Hospitalization)
  Sender: FDA-Public Use
  Company Number: None

PATIENT
  Age: 6 Month
  Sex: Male
  Weight: 8.73 kg

DRUGS (5)
  1. KIDS EAR RELIEF LIQUID. GRAPE FL [Suspect]
     Active Substance: HOMEOPATHICS
     Indication: EAR INFECTION
     Dosage: ?          QUANTITY:.75 DROP(S);?
     Route: 048
     Dates: start: 20160814, end: 20160818
  2. TYLENOL [Concomitant]
     Active Substance: ACETAMINOPHEN
  3. PROBIOTICS [Concomitant]
     Active Substance: PROBIOTICS NOS
  4. IBUPROFEN. [Concomitant]
     Active Substance: IBUPROFEN
  5. OMEPREZOLE [Concomitant]
     Active Substance: OMEPRAZOLE

REACTIONS (1)
  - Seizure [None]

NARRATIVE: CASE EVENT DATE: 20160818
